FAERS Safety Report 5518804-0 (Version None)
Quarter: 2007Q4

REPORT INFORMATION
  Report Type: 
  Country: None (occurrence: None)
  Receive Date: 20071115
  Receipt Date: 20071113
  Transmission Date: 20080405
  Serious: Yes (Disabling)
  Sender: FDA-Public Use
  Company Number: US-MERCK-0309USA00892

PATIENT
  Age: 69 Year
  Sex: Female

DRUGS (2)
  1. FOSAMAX [Suspect]
     Indication: OSTEOPOROSIS
     Route: 048
     Dates: start: 20030523, end: 20060428
  2. SYNTHROID [Concomitant]
     Route: 065

REACTIONS (8)
  - DENTAL CARIES [None]
  - GLOSSODYNIA [None]
  - IMPAIRED HEALING [None]
  - JAW DISORDER [None]
  - LOOSE TOOTH [None]
  - ORAL INFECTION [None]
  - SWOLLEN TONGUE [None]
  - TONGUE DISORDER [None]
